FAERS Safety Report 7778869-2 (Version None)
Quarter: 2011Q3

REPORT INFORMATION
  Report Type: 
  Country: None (occurrence: None)
  Receive Date: 20110926
  Receipt Date: 20110916
  Transmission Date: 20111222
  Serious: Yes (Hospitalization)
  Sender: FDA-Public Use
  Company Number: US-ACTELION-A-US2011-54305

PATIENT

DRUGS (2)
  1. REMODULIN [Concomitant]
  2. TRACLEER [Suspect]
     Indication: PULMONARY ARTERIAL HYPERTENSION
     Dosage: UNK
     Route: 048
     Dates: start: 20050701

REACTIONS (6)
  - ABDOMINAL ABSCESS [None]
  - HAEMORRHAGE [None]
  - SLEEP APNOEA SYNDROME [None]
  - STAPHYLOCOCCAL INFECTION [None]
  - ABSCESS DRAINAGE [None]
  - CONDITION AGGRAVATED [None]
